FAERS Safety Report 4588116-0 (Version None)
Quarter: 2005Q1

REPORT INFORMATION
  Report Type: 
  Country: None (occurrence: None)
  Receive Date: 20050216
  Receipt Date: 20050203
  Transmission Date: 20050727
  Serious: Yes (Other)
  Sender: FDA-Public Use
  Company Number: 211067

PATIENT
  Sex: Female

DRUGS (2)
  1. HERCEPTIN [Suspect]
     Indication: BREAST CANCER METASTATIC
     Dosage: 70 MG, 1/WEEK, INTRAVENOUS
     Route: 042
     Dates: start: 20031118, end: 20040323
  2. XELODA [Suspect]
     Dosage: 1200 MG, BID, ORAL
     Route: 048
     Dates: start: 20040203, end: 20040330

REACTIONS (3)
  - CONDITION AGGRAVATED [None]
  - METASTASES TO LUNG [None]
  - PULMONARY FIBROSIS [None]
